FAERS Safety Report 8598984-3 (Version None)
Quarter: 2012Q3

REPORT INFORMATION
  Report Type: 
  Country: None (occurrence: None)
  Receive Date: 20120816
  Receipt Date: 20120810
  Transmission Date: 20120928
  Serious: Yes (Hospitalization)
  Sender: FDA-Public Use
  Company Number: DE-BRISTOL-MYERS SQUIBB COMPANY-16850984

PATIENT

DRUGS (1)
  1. HYDROXYUREA [Suspect]

REACTIONS (1)
  - BLOOD FOLATE DECREASED [None]
